FAERS Safety Report 24853081 (Version 2)
Quarter: 2025Q1

REPORT INFORMATION
  Report Type: Spontaneous
  Country: US (occurrence: None)
  Receive Date: 20250116
  Receipt Date: 20250331
  Transmission Date: 20250409
  Serious: No
  Sender: BANNER
  Company Number: US-PTA-005908

PATIENT
  Age: 87 Year
  Sex: Female

DRUGS (1)
  1. NAPROXEN [Suspect]
     Active Substance: NAPROXEN
     Route: 048
     Dates: start: 20241226, end: 20250104

REACTIONS (3)
  - Erythema [Recovered/Resolved]
  - Peripheral swelling [Recovered/Resolved]
  - Pruritus [Recovered/Resolved]

NARRATIVE: CASE EVENT DATE: 20241228
